FAERS Safety Report 6627838-4 (Version None)
Quarter: 2010Q1

REPORT INFORMATION
  Report Type: 
  Country: None (occurrence: None)
  Receive Date: 20100308
  Receipt Date: 20100305
  Transmission Date: 20100710
  Serious: Yes (Other)
  Sender: FDA-Public Use
  Company Number: S07-USA-00045-01

PATIENT
  Age: 90 Year
  Sex: Female

DRUGS (7)
  1. TIAZAC [Suspect]
     Indication: HYPERTENSION
     Dosage: (1 IN 1 D), ORAL
     Route: 048
     Dates: start: 20060801, end: 20060801
  2. SPIRIVA [Concomitant]
  3. ADVAIR DISKUS 100/50 [Concomitant]
  4. FOSAMAX (ALENDRONATE SODIUM) (ALENDRONATE SODIUM) [Concomitant]
  5. MULTIVITAMIN (NOS) [Concomitant]
  6. OMEGA-3 (FISH OIL) (FISH OIL) [Concomitant]
  7. ALBUTEROL [Concomitant]

REACTIONS (4)
  - BLOOD PRESSURE INCREASED [None]
  - DIZZINESS [None]
  - HYPERHIDROSIS [None]
  - NAUSEA [None]
